FAERS Safety Report 13872782 (Version 1)
Quarter: 2017Q3

REPORT INFORMATION
  Report Type: Spontaneous
  Country: US (occurrence: US)
  Receive Date: 20170816
  Receipt Date: 20170816
  Transmission Date: 20171127
  Serious: No
  Sender: FDA-Public Use
  Company Number: US-BAYER-2017-156274

PATIENT
  Sex: Female

DRUGS (1)
  1. MIRALAX [Suspect]
     Active Substance: POLYETHYLENE GLYCOL 3350
     Dosage: 17 G MIXED IN 4 TO 8OZ OF LIQUID, QD
     Route: 048
     Dates: end: 20170814

REACTIONS (3)
  - Drug prescribing error [Unknown]
  - Expired product administered [None]
  - Incorrect drug administration duration [Unknown]

NARRATIVE: CASE EVENT DATE: 2012
